FAERS Safety Report 8296885-1 (Version None)
Quarter: 2012Q2

REPORT INFORMATION
  Report Type: 
  Country: None (occurrence: None)
  Receive Date: 20120419
  Receipt Date: 20120410
  Transmission Date: 20120825
  Serious: Yes (Hospitalization)
  Sender: FDA-Public Use
  Company Number: US-BIOGENIDEC-2011BI031172

PATIENT
  Age: 58 Year
  Sex: Female

DRUGS (1)
  1. AVONEX [Suspect]
     Indication: MULTIPLE SCLEROSIS
     Route: 030
     Dates: start: 20110502

REACTIONS (12)
  - MUSCLE STRAIN [None]
  - FALL [None]
  - HYPOAESTHESIA [None]
  - DRUG INEFFECTIVE [None]
  - INFLUENZA LIKE ILLNESS [None]
  - PARAESTHESIA [None]
  - POLYDIPSIA [None]
  - NAUSEA [None]
  - VISUAL IMPAIRMENT [None]
  - WATER INTOXICATION [None]
  - MUSCULOSKELETAL DISORDER [None]
  - FATIGUE [None]
